FAERS Safety Report 14609962 (Version 2)
Quarter: 2018Q2

REPORT INFORMATION
  Report Type: Spontaneous
  Country: CN (occurrence: CN)
  Receive Date: 20180307
  Receipt Date: 20180612
  Transmission Date: 20180711
  Serious: Yes (Life-Threatening)
  Sender: FDA-Public Use
  Company Number: CN-PFIZER INC-2018087811

PATIENT
  Age: 3 Year
  Sex: Male
  Weight: 14 kg

DRUGS (1)
  1. AZITHROMYCIN ANHYDROUS. [Suspect]
     Active Substance: AZITHROMYCIN ANHYDROUS
     Indication: PNEUMONITIS
     Dosage: 140 MG, 1X/DAY
     Route: 041
     Dates: start: 20171227, end: 20171229

REACTIONS (7)
  - Drug hypersensitivity [Recovering/Resolving]
  - Pallor [Recovering/Resolving]
  - Irregular breathing [Recovering/Resolving]
  - Hyperhidrosis [Recovering/Resolving]
  - Rales [Recovering/Resolving]
  - Breath sounds abnormal [Recovering/Resolving]
  - Drug administered to patient of inappropriate age [Unknown]

NARRATIVE: CASE EVENT DATE: 20171227
